FAERS Safety Report 4976005-9 (Version None)
Quarter: 2006Q2

REPORT INFORMATION
  Report Type: 
  Country: None (occurrence: None)
  Receive Date: 20060418
  Receipt Date: 20050325
  Transmission Date: 20061013
  Serious: Yes (Hospitalization)
  Sender: FDA-Public Use
  Company Number: US-MERCK-0503USA04978

PATIENT
  Age: 41 Year
  Sex: Male
  Weight: 80 kg

DRUGS (13)
  1. VIOXX [Suspect]
     Indication: ARTHRITIS
     Route: 048
     Dates: start: 20030101, end: 20030101
  2. VIOXX [Suspect]
     Route: 048
     Dates: start: 20040101, end: 20040701
  3. VIOXX [Suspect]
     Route: 048
     Dates: start: 20020826
  4. VIOXX [Suspect]
     Indication: OSTEOARTHRITIS
     Route: 048
     Dates: start: 20030101, end: 20030101
  5. VIOXX [Suspect]
     Route: 048
     Dates: start: 20040101, end: 20040701
  6. VIOXX [Suspect]
     Route: 048
     Dates: start: 20020826
  7. ATENOLOL [Concomitant]
     Route: 065
  8. PREVACID [Concomitant]
     Route: 065
  9. CLONIDINE [Concomitant]
     Route: 065
  10. SOMA [Concomitant]
     Route: 065
  11. NORCO [Concomitant]
     Route: 065
  12. ASPIRIN [Concomitant]
     Route: 065
  13. VITAMINS (UNSPECIFIED) [Concomitant]
     Route: 065

REACTIONS (24)
  - BACK INJURY [None]
  - BACK PAIN [None]
  - BRONCHITIS [None]
  - CHEST PAIN [None]
  - DEPRESSION [None]
  - DIZZINESS [None]
  - DRUG INEFFECTIVE [None]
  - FALL [None]
  - HYPERTENSION [None]
  - INTERVERTEBRAL DISC DEGENERATION [None]
  - JOINT DISLOCATION [None]
  - JOINT SPRAIN [None]
  - LACERATION [None]
  - LIGAMENT SPRAIN [None]
  - NECK INJURY [None]
  - PAIN [None]
  - RADICULOPATHY [None]
  - RESPIRATORY ARREST [None]
  - ROAD TRAFFIC ACCIDENT [None]
  - ROTATOR CUFF SYNDROME [None]
  - STRESS [None]
  - SWELLING FACE [None]
  - SYNCOPE [None]
  - TENSION HEADACHE [None]
